FAERS Safety Report 4452609-7 (Version None)
Quarter: 2004Q3

REPORT INFORMATION
  Report Type: 
  Country: None (occurrence: None)
  Receive Date: 20040916
  Receipt Date: 20040906
  Transmission Date: 20050211
  Serious: Yes (Death, Other)
  Sender: FDA-Public Use
  Company Number: 2003125252

PATIENT
  Age: 13 Year
  Sex: Female
  Weight: 30 kg

DRUGS (3)
  1. VFEND [Suspect]
     Indication: ANTIFUNGAL PROPHYLAXIS
     Dosage: UNKNOWN (2 IN 1 D), ORAL
     Route: 048
     Dates: start: 20020924
  2. ANTIFUNGALS [Concomitant]
  3. CASPOFUNGIN [Concomitant]

REACTIONS (8)
  - GRAFT VERSUS HOST DISEASE [None]
  - HEPATIC LESION [None]
  - LIVER ABSCESS [None]
  - LUNG DISORDER [None]
  - MUCORMYCOSIS [None]
  - NERVOUS SYSTEM DISORDER [None]
  - RENAL DISORDER [None]
  - ZYGOMYCOSIS [None]
